FAERS Safety Report 9167969 (Version 2)
Quarter: 2013Q1

REPORT INFORMATION
  Report Type: Spontaneous
  Country: GB (occurrence: GB)
  Receive Date: 20130318
  Receipt Date: 20130328
  Transmission Date: 20140127
  Serious: Yes (Other)
  Sender: FDA-Public Use
  Company Number: GB-BAYER-2013-030089

PATIENT
  Sex: Female

DRUGS (1)
  1. MIRENA [Suspect]
     Dosage: 20 ?G/D, CONT
     Route: 015
     Dates: start: 2007, end: 2009

REACTIONS (15)
  - Device misuse [None]
  - Post procedural discomfort [None]
  - Device breakage [None]
  - Abdominal pain [Not Recovered/Not Resolved]
  - Hypomenorrhoea [None]
  - Uterine spasm [None]
  - Muscle spasms [None]
  - Pelvic pain [None]
  - Abasia [None]
  - Device difficult to use [None]
  - Complication of device removal [None]
  - Cervix disorder [None]
  - Sciatica [Not Recovered/Not Resolved]
  - Pain in extremity [Not Recovered/Not Resolved]
  - Cyst [None]
